FAERS Safety Report 6169211-1 (Version None)
Quarter: 2009Q2

REPORT INFORMATION
  Report Type: 
  Country: None (occurrence: None)
  Receive Date: 20090427
  Receipt Date: 20090414
  Transmission Date: 20091009
  Serious: Yes (Other)
  Sender: FDA-Public Use
  Company Number: CA-GENENTECH-281487

PATIENT
  Sex: Female

DRUGS (1)
  1. AVASTIN [Suspect]
     Indication: COLORECTAL CANCER METASTATIC
     Dosage: 562 MG, Q2W
     Route: 042
     Dates: start: 20080729

REACTIONS (4)
  - ASCITES [None]
  - HYPERTENSION [None]
  - NODULE [None]
  - WEIGHT DECREASED [None]
